FAERS Safety Report 14415252 (Version 1)
Quarter: 2018Q1

REPORT INFORMATION
  Report Type: Other
  Country: KP (occurrence: KP)
  Receive Date: 20180121
  Receipt Date: 20180121
  Transmission Date: 20180509
  Serious: Yes (Hospitalization, Other)
  Sender: FDA-Public Use
  Company Number: KP-BIO-PHARM, INC -2040428

PATIENT
  Age: 69 Year
  Sex: Male

DRUGS (1)
  1. RANITIDINE. [Suspect]
     Active Substance: RANITIDINE

REACTIONS (1)
  - Kounis syndrome [Recovered/Resolved]
